FAERS Safety Report 17717127 (Version 1)
Quarter: 2020Q2

REPORT INFORMATION
  Report Type: Spontaneous
  Country: IN (occurrence: IN)
  Receive Date: 20200428
  Receipt Date: 20200428
  Transmission Date: 20200714
  Serious: Yes (Death, Hospitalization, Other)
  Sender: FDA-Public Use
  Company Number: IN-VISTAPHARM, INC.-VER202004-000800

PATIENT
  Age: 13 Year
  Sex: Male

DRUGS (2)
  1. PREDNISOLONE. [Suspect]
     Active Substance: PREDNISOLONE
     Indication: MYELITIS
     Dosage: UNKNOWN
     Route: 048
  2. METHYL PREDNISOLONE [Concomitant]
     Active Substance: METHYLPREDNISOLONE
     Indication: MYELITIS
     Dosage: UNKNOWN
     Route: 042

REACTIONS (9)
  - Pericardial effusion [Unknown]
  - Malnutrition [Unknown]
  - Left ventricular failure [Unknown]
  - Hypotension [Unknown]
  - Disseminated strongyloidiasis [Fatal]
  - Headache [Unknown]
  - Generalised oedema [Unknown]
  - Malabsorption [Unknown]
  - Pyuria [Unknown]
